FAERS Safety Report 4546107-X (Version None)
Quarter: 2005Q1

REPORT INFORMATION
  Report Type: 
  Country: None (occurrence: None)
  Receive Date: 20050106
  Receipt Date: 20041208
  Transmission Date: 20050727
  Serious: Yes (Other)
  Sender: FDA-Public Use
  Company Number: DE-NOVOPROD-240990

PATIENT
  Age: 6 Year
  Sex: Male

DRUGS (4)
  1. NORDITROPIN SIMPLEXX [Suspect]
     Indication: GROWTH HORMONE DEFICIENCY
     Dosage: .6 MG, QD
     Route: 058
     Dates: start: 20020206
  2. HYDROCORTISON [Concomitant]
     Dosage: 12.5 MG, QD
     Route: 048
     Dates: start: 20010501
  3. MINIRIN ^AVENTIS PHARMA^ [Concomitant]
     Dosage: .3 UG, QD
     Route: 048
     Dates: start: 20010501
  4. THYROXIN [Concomitant]
     Dosage: 37.5 UG, QD
     Route: 048
     Dates: start: 20010501

REACTIONS (3)
  - CONDITION AGGRAVATED [None]
  - NEOPLASM PROGRESSION [None]
  - SCAR [None]
